FAERS Safety Report 15288247 (Version 2)
Quarter: 2018Q3

REPORT INFORMATION
  Report Type: Spontaneous
  Country: FR (occurrence: FR)
  Receive Date: 20180817
  Receipt Date: 20180831
  Transmission Date: 20181010
  Serious: Yes (Hospitalization)
  Sender: FDA-Public Use
  Company Number: FR-AUROBINDO-AUR-APL-2018-041538

PATIENT
  Age: 57 Year
  Sex: Male
  Weight: 84 kg

DRUGS (9)
  1. ONDANSETRON [Suspect]
     Active Substance: ONDANSETRON
     Indication: PRODUCT USED FOR UNKNOWN INDICATION
     Dosage: UNK,
     Route: 048
     Dates: start: 20180704, end: 20180718
  2. CEFOTAXIME SODIUM [Suspect]
     Active Substance: CEFOTAXIME SODIUM
     Indication: BRAIN EMPYEMA
     Dosage: 16 G, QD
     Route: 042
     Dates: start: 20180704, end: 20180712
  3. LEVETIRACETAM. [Suspect]
     Active Substance: LEVETIRACETAM
     Indication: SEIZURE
     Dosage: UNK, UNK ()
     Route: 048
     Dates: start: 20180706, end: 20180719
  4. CLAFORAN [Suspect]
     Active Substance: CEFOTAXIME SODIUM
     Indication: BRAIN EMPYEMA
     Dosage: 16 GRAM, ONCE A DAY
     Route: 042
     Dates: start: 20180704, end: 20180712
  5. VANCOMYCINE                        /00314401/ [Suspect]
     Active Substance: VANCOMYCIN
     Indication: BRAIN EMPYEMA
     Dosage: UNK
     Route: 042
     Dates: start: 20180704, end: 20180718
  6. LANSOPRAZOLE. [Suspect]
     Active Substance: LANSOPRAZOLE
     Indication: PRODUCT USED FOR UNKNOWN INDICATION
     Dosage: UNK
     Route: 048
     Dates: start: 20180704, end: 20180720
  7. LEVOFLOXACIN FILMCOATED TABLET [Suspect]
     Active Substance: LEVOFLOXACIN
     Indication: PRODUCT USED FOR UNKNOWN INDICATION
     Dosage: 1000 MG, QD
     Route: 048
     Dates: start: 20180712, end: 20180714
  8. KEPPRA [Suspect]
     Active Substance: LEVETIRACETAM
     Indication: SEIZURE
     Dosage: UNK
     Route: 048
     Dates: start: 20180706, end: 20180719
  9. TAVANIC [Suspect]
     Active Substance: LEVOFLOXACIN
     Indication: BRAIN EMPYEMA
     Dosage: 1000 MILLIGRAM, ONCE A DAY
     Route: 048
     Dates: start: 20180712, end: 20180714

REACTIONS (3)
  - Rash maculo-papular [Recovered/Resolved]
  - Eosinophilia [Recovered/Resolved]
  - Face oedema [Recovered/Resolved]

NARRATIVE: CASE EVENT DATE: 20180713
